FAERS Safety Report 10296855 (Version 1)
Quarter: 2014Q3

REPORT INFORMATION
  Report Type: Spontaneous
  Country: TR (occurrence: TR)
  Receive Date: 20140711
  Receipt Date: 20140711
  Transmission Date: 20150326
  Serious: Yes (Hospitalization, Other)
  Sender: FDA-Public Use
  Company Number: TR-BAYER-2014-100117

PATIENT
  Age: 65 Year
  Sex: Male

DRUGS (5)
  1. REPAGLINIDE. [Concomitant]
     Active Substance: REPAGLINIDE
  2. ROSIGLITAZONE [Concomitant]
     Active Substance: ROSIGLITAZONE
  3. WARFARIN [Suspect]
     Active Substance: WARFARIN
  4. LOSARTAN [Concomitant]
     Active Substance: LOSARTAN
  5. ACETYLSALICYLIC ACID({=100 MG) [Suspect]
     Active Substance: ASPIRIN

REACTIONS (16)
  - Retinal detachment [None]
  - Haemoglobin decreased [None]
  - Activated partial thromboplastin time prolonged [None]
  - Retinal haemorrhage [None]
  - Melaena [None]
  - Conjunctival haemorrhage [None]
  - Labelled drug-drug interaction medication error [None]
  - Blood glucose increased [None]
  - Blood urea increased [None]
  - Haematuria [None]
  - International normalised ratio increased [None]
  - Haematocrit decreased [None]
  - Ecchymosis [None]
  - Atrial fibrillation [None]
  - Conjunctival oedema [None]
  - Blood creatinine increased [None]
